FAERS Safety Report 8847098 (Version 1)
Quarter: 2012Q4

REPORT INFORMATION
  Report Type: Spontaneous
  Country: JP (occurrence: None)
  Receive Date: 20121016
  Receipt Date: 20121016
  Transmission Date: 20130627
  Serious: Yes (Hospitalization)
  Sender: FDA-Public Use
  Company Number: US-2012-10987

PATIENT
  Age: 63 Year
  Sex: Male

DRUGS (3)
  1. CILOSTAZOL [Suspect]
     Indication: ANTIPLATELET THERAPY
  2. ASPIRIN (ASPIRIN) [Concomitant]
  3. HEPARIN (HEPARIN SODIUM) [Concomitant]

REACTIONS (3)
  - Hemiparesis [None]
  - Depressed level of consciousness [None]
  - Coronary artery restenosis [None]
